FAERS Safety Report 11110264 (Version 2)
Quarter: 2015Q2

REPORT INFORMATION
  Report Type: Spontaneous
  Country: US (occurrence: US)
  Receive Date: 20150513
  Receipt Date: 20150605
  Transmission Date: 20150821
  Serious: Yes (Hospitalization, Other)
  Sender: FDA-Public Use
  Company Number: US-GLAXOSMITHKLINE-US2015063394

PATIENT
  Age: 85 Year
  Sex: Male

DRUGS (2)
  1. PROMACTA [Suspect]
     Active Substance: ELTROMBOPAG OLAMINE
     Indication: IMMUNE THROMBOCYTOPENIC PURPURA
     Dosage: 25 MG, QD
     Route: 048
     Dates: start: 200805
  2. COUMADIN [Concomitant]
     Active Substance: WARFARIN SODIUM

REACTIONS (4)
  - Road traffic accident [Not Recovered/Not Resolved]
  - Coma [Not Recovered/Not Resolved]
  - Atrial fibrillation [Recovering/Resolving]
  - Cardiac pacemaker insertion [Recovering/Resolving]

NARRATIVE: CASE EVENT DATE: 2011
